FAERS Safety Report 16145998 (Version 1)
Quarter: 2019Q2

REPORT INFORMATION
  Report Type: Spontaneous
  Country: FR (occurrence: FR)
  Receive Date: 20190402
  Receipt Date: 20190402
  Transmission Date: 20190711
  Serious: Yes (Hospitalization)
  Sender: FDA-Public Use
  Company Number: FR-ACCORD-117089

PATIENT
  Age: 43 Year
  Sex: Female

DRUGS (6)
  1. RAPIFEN (ALFENTANIL HYDROCHLORIDE) [Suspect]
     Active Substance: ALFENTANIL HYDROCHLORIDE
     Indication: ANAESTHESIA
     Dosage: 2 MG
     Route: 042
     Dates: start: 20190107, end: 20190107
  2. SUFENTANIL [Suspect]
     Active Substance: SUFENTANIL
     Indication: ANAESTHESIA
     Dosage: 15MCG
     Route: 042
     Dates: start: 20190107, end: 20190107
  3. AMOXICILLIN AND CLAVULANATE POTASSIUM [Suspect]
     Active Substance: AMOXICILLIN\CLAVULANATE POTASSIUM
     Indication: ANTIBIOTIC PROPHYLAXIS
     Dosage: 2 G SINGLE SHOT
     Route: 042
     Dates: start: 20190107, end: 20190107
  4. PROPOFOL. [Suspect]
     Active Substance: PROPOFOL
     Indication: ANAESTHESIA
     Dosage: 300 MG
     Route: 042
     Dates: start: 20190107, end: 20190107
  5. KETAMINE [Suspect]
     Active Substance: KETAMINE
     Indication: ANAESTHESIA
     Dosage: 20 MG
     Route: 042
     Dates: start: 20190107, end: 20190107
  6. CISATRACURIUM/CISATRACURIUM BESILATE [Suspect]
     Active Substance: CISATRACURIUM BESYLATE
     Indication: NEUROMUSCULAR BLOCKING THERAPY
     Route: 042
     Dates: start: 20190107, end: 20190107

REACTIONS (1)
  - Anaphylactoid shock [Recovered/Resolved]

NARRATIVE: CASE EVENT DATE: 20190107
